FAERS Safety Report 5442311-7 (Version None)
Quarter: 2007Q3

REPORT INFORMATION
  Report Type: 
  Country: None (occurrence: None)
  Receive Date: 20070904
  Receipt Date: 20070823
  Transmission Date: 20080115
  Serious: Yes (Other)
  Sender: FDA-Public Use
  Company Number: US-PFIZER INC-2007070267

PATIENT
  Sex: Female

DRUGS (2)
  1. NORVASC [Suspect]
  2. MICARDIS [Suspect]

REACTIONS (1)
  - RENAL FAILURE [None]
